FAERS Safety Report 6528745-8 (Version None)
Quarter: 2009Q4

REPORT INFORMATION
  Report Type: 
  Country: None (occurrence: None)
  Receive Date: 20091231
  Receipt Date: 20091215
  Transmission Date: 20100525
  Serious: Yes (Hospitalization, Other)
  Sender: FDA-Public Use
  Company Number: 2009AL007872

PATIENT
  Age: 67 Year
  Sex: Male

DRUGS (4)
  1. CHLORPROMAZINE HYDROCHLORIDE [Suspect]
     Indication: AGITATION
     Dosage: 25 MG;TID;PO
     Route: 048
     Dates: start: 20060101, end: 20060101
  2. PROCYCLIDINE HYDROCHLORIDE 2MG TAB [Concomitant]
  3. ARICEPT [Concomitant]
  4. ARICEPT [Concomitant]

REACTIONS (12)
  - ASTHENIA [None]
  - BLOOD CREATINE PHOSPHOKINASE INCREASED [None]
  - BODY TEMPERATURE INCREASED [None]
  - COGNITIVE DISORDER [None]
  - CONFUSIONAL STATE [None]
  - DELIRIUM [None]
  - DRUG INTERACTION [None]
  - DYSKINESIA [None]
  - HALLUCINATION, VISUAL [None]
  - MUSCLE RIGIDITY [None]
  - MYOCLONIC EPILEPSY [None]
  - TREMOR [None]
